FAERS Safety Report 9329699 (Version 1)
Quarter: 2013Q2

REPORT INFORMATION
  Report Type: Spontaneous
  Country: US (occurrence: US)
  Receive Date: 20130604
  Receipt Date: 20130604
  Transmission Date: 20140414
  Serious: No
  Sender: FDA-Public Use
  Company Number: US-SANOFI-AVENTIS-2013SA001443

PATIENT
  Age: 90 Year
  Sex: Female

DRUGS (3)
  1. SOLOSTAR [Suspect]
  2. LANTUS SOLOSTAR [Suspect]
     Dosage: 18-24 UNITS DOSE:18 UNIT(S)
     Route: 051
  3. HUMALOG [Concomitant]

REACTIONS (3)
  - Injury associated with device [Unknown]
  - Visual impairment [Unknown]
  - Incorrect storage of drug [Unknown]
